FAERS Safety Report 22807379 (Version 4)
Quarter: 2025Q3

REPORT INFORMATION
  Report Type: Spontaneous
  Country: EU (occurrence: EU)
  Receive Date: 20230810
  Receipt Date: 20250802
  Transmission Date: 20251020
  Serious: Yes (Other)
  Sender: ALEXION PHARMACEUTICALS
  Company Number: 2023A176312

PATIENT
  Age: 74 Year
  Sex: Male

DRUGS (2)
  1. DAPAGLIFLOZIN [Suspect]
     Active Substance: DAPAGLIFLOZIN
     Indication: Chronic kidney disease
  2. ERYTHROPOIETIN [Suspect]
     Active Substance: ERYTHROPOIETIN
     Indication: Leukaemia

REACTIONS (7)
  - Glomerular filtration rate decreased [Unknown]
  - Creatinine renal clearance decreased [Unknown]
  - Blood urine present [Unknown]
  - Urine albumin/creatinine ratio increased [Unknown]
  - Benign prostatic hyperplasia [Unknown]
  - Weight decreased [Unknown]
  - Fatigue [Unknown]
